FAERS Safety Report 23819346 (Version 1)
Quarter: 2024Q2

REPORT INFORMATION
  Report Type: Spontaneous
  Country: RU (occurrence: None)
  Receive Date: 20240506
  Receipt Date: 20240506
  Transmission Date: 20240716
  Serious: Yes (Hospitalization, Other)
  Sender: FDA-Public Use
  Company Number: RU-ROCHE-3555072

PATIENT
  Age: 70 Year
  Sex: Male

DRUGS (1)
  1. ATEZOLIZUMAB [Suspect]
     Active Substance: ATEZOLIZUMAB
     Indication: Bladder cancer
     Route: 041

REACTIONS (17)
  - Angina pectoris [Unknown]
  - Myocardial ischaemia [Unknown]
  - Hypertension [Unknown]
  - Acute coronary syndrome [Unknown]
  - Rib fracture [Unknown]
  - Rash [Unknown]
  - Pruritus [Unknown]
  - Respiratory tract infection viral [Unknown]
  - Diarrhoea [Unknown]
  - Asthenia [Unknown]
  - Dizziness [Unknown]
  - Dyspnoea exertional [Unknown]
  - Blood pressure decreased [Unknown]
  - Biliary dyskinesia [Unknown]
  - Sepsis [Unknown]
  - Gallbladder disorder [Unknown]
  - Urticaria [Unknown]
